FAERS Safety Report 6150841-8 (Version None)
Quarter: 2009Q2

REPORT INFORMATION
  Report Type: 
  Country: None (occurrence: None)
  Receive Date: 20090409
  Receipt Date: 20090401
  Transmission Date: 20091009
  Serious: Yes (Death)
  Sender: FDA-Public Use
  Company Number: JP-WATSON-2009-02249

PATIENT
  Age: 60 Year
  Sex: Male

DRUGS (2)
  1. RAPAFLO [Suspect]
     Indication: BLADDER OBSTRUCTION
     Dosage: 8 MG, DAILY
     Route: 048
     Dates: start: 20080813, end: 20081113
  2. URINORM [Suspect]
     Indication: DRUG USE FOR UNKNOWN INDICATION
     Dosage: UNK
     Route: 048

REACTIONS (6)
  - ANOREXIA [None]
  - HEPATIC ATROPHY [None]
  - HEPATITIS FULMINANT [None]
  - JAUNDICE [None]
  - MALAISE [None]
  - PYREXIA [None]
